FAERS Safety Report 23397907 (Version 1)
Quarter: 2024Q1

REPORT INFORMATION
  Report Type: Spontaneous
  Country: CA (occurrence: CA)
  Receive Date: 20240112
  Receipt Date: 20240112
  Transmission Date: 20240410
  Serious: Yes (Death)
  Sender: FDA-Public Use
  Company Number: CA-TAIHOP-2024-000177

PATIENT
  Age: 65 Year
  Sex: Male

DRUGS (1)
  1. LONSURF [Suspect]
     Active Substance: TIPIRACIL HYDROCHLORIDE\TRIFLURIDINE
     Indication: Colorectal cancer metastatic
     Dosage: DOSE, FREQUENCY, AND CURRENT CYCLE UNKNOWN.
     Route: 048
     Dates: start: 20231120

REACTIONS (1)
  - Death [Fatal]

NARRATIVE: CASE EVENT DATE: 20240108
